FAERS Safety Report 23514604 (Version 1)
Quarter: 2024Q1

REPORT INFORMATION
  Report Type: Spontaneous
  Country: CN (occurrence: CN)
  Receive Date: 20240212
  Receipt Date: 20240212
  Transmission Date: 20240409
  Serious: Yes (Life-Threatening, Hospitalization, Other)
  Sender: FDA-Public Use
  Company Number: CN-PFIZER INC-PV202400019795

PATIENT
  Age: 9 Year
  Sex: Female
  Weight: 22.5 kg

DRUGS (7)
  1. SOLU-MEDROL [Suspect]
     Active Substance: METHYLPREDNISOLONE SODIUM SUCCINATE
     Indication: Systemic lupus erythematosus
     Dosage: 24 MG, 2X/DAY (PLUS 4:1 GLUCOSE SODIUM CHLORIDE 100 ML)
     Route: 041
     Dates: start: 20231130, end: 20231218
  2. SOLU-MEDROL [Suspect]
     Active Substance: METHYLPREDNISOLONE SODIUM SUCCINATE
     Dosage: 500 MG, 1X/DAY (PLUS 4:1 GLUCOSE SODIUM CHLORIDE 250 ML)
     Route: 041
     Dates: start: 20231211, end: 20231213
  3. SOLU-MEDROL [Suspect]
     Active Substance: METHYLPREDNISOLONE SODIUM SUCCINATE
     Dosage: 500 MG, 1X/DAY (PLUS 4:1 GLUCOSE SODIUM CHLORIDE 250 ML)
     Route: 041
     Dates: start: 20231218, end: 20231220
  4. SOLU-MEDROL [Suspect]
     Active Substance: METHYLPREDNISOLONE SODIUM SUCCINATE
     Dosage: 21 MG, 2X/DAY (PLUS 4:1 GLUCOSE SODIUM CHLORIDE 100 ML)
     Route: 041
     Dates: start: 20231221, end: 20240104
  5. CYCLOPHOSPHAMIDE [Suspect]
     Active Substance: CYCLOPHOSPHAMIDE
     Indication: Systemic lupus erythematosus
     Dosage: 0.22 G (PLUS 4:1 GLUCOSE SODIUM CHLORIDE 250ML), ONCE EVERY 15 DAYS
     Route: 041
     Dates: start: 20231222, end: 20231223
  6. CYCLOPHOSPHAMIDE [Suspect]
     Active Substance: CYCLOPHOSPHAMIDE
     Dosage: 0.22 G (PLUS 4:1 GLUCOSE SODIUM CHLORIDE 250ML), ONCE EVERY 15 DAYS
     Route: 041
     Dates: start: 20240106, end: 20240107
  7. PREDNISONE ACETATE [Suspect]
     Active Substance: PREDNISONE ACETATE
     Indication: Systemic lupus erythematosus
     Dosage: 22.5 MG, 2X/DAY
     Route: 048
     Dates: start: 20240104

REACTIONS (10)
  - Infection [Unknown]
  - Hypokalaemia [Unknown]
  - Pneumonia mycoplasmal [Unknown]
  - Aspergillus infection [Unknown]
  - Pneumocystis jirovecii infection [Unknown]
  - Candida infection [Unknown]
  - Rhinovirus infection [Unknown]
  - Influenza [Unknown]
  - Cytomegalovirus infection [Unknown]
  - Seizure [Unknown]

NARRATIVE: CASE EVENT DATE: 20231215
